FAERS Safety Report 10076436 (Version 2)
Quarter: 2014Q2

REPORT INFORMATION
  Report Type: Spontaneous
  Country: US (occurrence: None)
  Receive Date: 20140410
  Receipt Date: 20140411
  Transmission Date: 20141212
  Serious: Yes (Death, Life-Threatening, Hospitalization, Other)
  Sender: FDA-Public Use
  Company Number: UTC-045707

PATIENT
  Age: 72 Year
  Sex: Male
  Weight: 90.7 kg

DRUGS (2)
  1. TYVASO [Suspect]
     Indication: PULMONARY ARTERIAL HYPERTENSION
     Route: 055
     Dates: start: 20110602, end: 20140217
  2. WARFARIN (WARFARIN) [Concomitant]

REACTIONS (5)
  - Pulmonary hypertension [None]
  - Acute respiratory failure [None]
  - Hypoxic-ischaemic encephalopathy [None]
  - Brain injury [None]
  - Pneumonia [None]
